FAERS Safety Report 8731484 (Version 2)
Quarter: 2012Q4

REPORT INFORMATION
  Report Type: 
  Country: DE (occurrence: DE)
  Receive Date: 20120820
  Receipt Date: 20120925
  Transmission Date: 20130627
  Serious: Yes (Other)
  Sender: FDA-Public Use
  Company Number: PHHY2012DE070400

PATIENT
  Age: 3 Year
  Sex: Female
  Weight: 13.7 kg

DRUGS (5)
  1. SANDIMMUN OPTORAL [Suspect]
     Indication: PROPHYLAXIS
     Dosage: 50 mg, BID
     Route: 048
     Dates: start: 20120804, end: 20120810
  2. PREDNISOLONE [Concomitant]
     Dosage: 2 mg, per day
     Route: 048
  3. RAMIPRIL [Concomitant]
     Dosage: 1.25 mg, per day
     Route: 048
  4. PROPRANOLOL [Concomitant]
     Dosage: 10 mg-5mg-10 mg
     Route: 048
  5. SODIUM BICARBONATE [Concomitant]
     Dosage: 10 ml, thrice a day
     Route: 048

REACTIONS (5)
  - Personality change [Recovered/Resolved]
  - Abnormal behaviour [Recovered/Resolved]
  - Screaming [Recovered/Resolved]
  - Aggression [Recovered/Resolved]
  - Rash [Recovered/Resolved]
